FAERS Safety Report 5146847-8 (Version None)
Quarter: 2006Q4

REPORT INFORMATION
  Report Type: 
  Country: None (occurrence: None)
  Receive Date: 20061109
  Receipt Date: 20060929
  Transmission Date: 20070319
  Serious: Yes (Hospitalization, Disabling)
  Sender: FDA-Public Use
  Company Number: US-GLAXOSMITHKLINE-A0621952A

PATIENT
  Age: 84 Year
  Sex: Female
  Weight: 106 kg

DRUGS (6)
  1. PAXIL [Suspect]
     Indication: PANIC DISORDER
     Dosage: 40MG PER DAY
     Route: 048
  2. KLONOPIN [Concomitant]
  3. SPIRIVA [Concomitant]
  4. METOPROLOL TARTRATE [Concomitant]
  5. DUONEB [Concomitant]
  6. ASACOL [Concomitant]

REACTIONS (4)
  - DYSPHAGIA [None]
  - FALL [None]
  - HIP FRACTURE [None]
  - VOMITING [None]
